FAERS Safety Report 6361352-9 (Version None)
Quarter: 2009Q3

REPORT INFORMATION
  Report Type: 
  Country: None (occurrence: None)
  Receive Date: 20090918
  Receipt Date: 20090910
  Transmission Date: 20100115
  Serious: Yes (Hospitalization)
  Sender: FDA-Public Use
  Company Number: B0592197A

PATIENT
  Sex: Female

DRUGS (7)
  1. LAMICTAL [Suspect]
     Indication: MANIA
     Dosage: 150MG PER DAY
     Route: 048
     Dates: start: 20081104, end: 20081128
  2. TRIHEXYPHENIDYL HCL [Concomitant]
     Indication: MANIA
     Dosage: 6MG PER DAY
     Route: 048
     Dates: start: 20081101, end: 20081128
  3. OLANZAPINE [Concomitant]
     Indication: MANIA
     Dosage: 20MG PER DAY
     Route: 048
     Dates: start: 20081101, end: 20081128
  4. HALOPERIDOL [Concomitant]
     Indication: DRUG USE FOR UNKNOWN INDICATION
     Route: 065
     Dates: start: 20080101
  5. CHLORPROMAZINE [Concomitant]
     Indication: DRUG USE FOR UNKNOWN INDICATION
     Route: 065
  6. VALPROIC ACID [Concomitant]
     Indication: SCHIZOPHRENIA
     Dosage: 75MG PER DAY
     Route: 065
  7. CHLORPROTHIXENE [Concomitant]
     Route: 065

REACTIONS (8)
  - DRUG HYPERSENSITIVITY [None]
  - FACE OEDEMA [None]
  - HYPERAEMIA [None]
  - PYREXIA [None]
  - RASH [None]
  - RASH GENERALISED [None]
  - TOXIC SKIN ERUPTION [None]
  - URTICARIA [None]
